FAERS Safety Report 5409342-4 (Version None)
Quarter: 2007Q4

REPORT INFORMATION
  Report Type: 
  Country: None (occurrence: None)
  Receive Date: 20070809
  Receipt Date: 20070801
  Transmission Date: 20080405
  Serious: Yes (Other)
  Sender: FDA-Public Use
  Company Number: BR-JNJFOC-20070800742

PATIENT
  Age: 1 Month
  Sex: Female
  Weight: 3 kg

DRUGS (3)
  1. MICONAZOLE NITRATE [Suspect]
     Route: 061
  2. MICONAZOLE NITRATE [Suspect]
     Indication: ORAL CANDIDIASIS
     Route: 061
  3. LUFATL [Concomitant]
     Route: 048

REACTIONS (1)
  - INTENTIONAL DRUG MISUSE [None]
